FAERS Safety Report 14342616 (Version 1)
Quarter: 2018Q1

REPORT INFORMATION
  Report Type: Spontaneous
  Country: DE (occurrence: DE)
  Receive Date: 20180102
  Receipt Date: 20180102
  Transmission Date: 20180509
  Serious: Yes (Hospitalization)
  Sender: FDA-Public Use
  Company Number: DE-NOVOPROD-579228

PATIENT
  Age: 24 Year
  Sex: Female
  Weight: 60 kg

DRUGS (3)
  1. SEMILENTE (INSULIN PORCINE ZINC SUSPENSION) [Suspect]
     Active Substance: INSULIN PORK\INSULIN PURIFIED PORK
     Indication: TYPE 1 DIABETES MELLITUS
     Dosage: UNK
     Route: 065
  2. ACTRAPID [Suspect]
     Active Substance: INSULIN HUMAN
     Indication: TYPE 1 DIABETES MELLITUS
     Dosage: UNK
     Route: 065
  3. PROTAPHANE [Suspect]
     Active Substance: INSULIN HUMAN
     Indication: TYPE 1 DIABETES MELLITUS
     Dosage: UNK
     Route: 065

REACTIONS (4)
  - Diabetic ketoacidosis [Unknown]
  - Anti-insulin antibody increased [Unknown]
  - Diabetes mellitus inadequate control [Unknown]
  - Hypoglycaemia [Unknown]
